FAERS Safety Report 7274964 (Version 2)
Quarter: 2013Q3

REPORT INFORMATION
  Report Type: Spontaneous
  Country: US (occurrence: US)
  Receive Date: 20100210
  Receipt Date: 20130923
  Transmission Date: 20140515
  Serious: Yes (Hospitalization)
  Sender: FDA-Public Use
  Company Number: US-BAYER-201013012NA

PATIENT
  Age: 48 Year
  Sex: Female

DRUGS (11)
  1. YAZ [Suspect]
     Dosage: UNK
     Dates: start: 2006
  2. YASMIN [Suspect]
  3. LISINOPRIL [Concomitant]
     Indication: PRODUCT USED FOR UNKNOWN INDICATION
     Dates: start: 201001
  4. EPINEPHRINE [Concomitant]
     Indication: BLOOD PRESSURE DECREASED
  5. IBUPROFEN [Concomitant]
     Dosage: 800 MG, UNK
  6. PROMETHAZINE W/CODEINE [Concomitant]
  7. DILTIAZEM CD [Concomitant]
     Dosage: 120 MG, UNK
  8. NITROFURANT MACRO [Concomitant]
     Dosage: 100 MG, UNK
  9. TOBRAMYCIN [Concomitant]
     Indication: URINARY TRACT INFECTION
  10. BENADRYL [Concomitant]
  11. BACLOFEN [Concomitant]

REACTIONS (2)
  - Haemorrhagic stroke [Recovering/Resolving]
  - Myocardial infarction [Unknown]
